FAERS Safety Report 11226331 (Version 1)
Quarter: 2015Q2

REPORT INFORMATION
  Report Type: Spontaneous
  Country: FR (occurrence: FR)
  Receive Date: 20150629
  Receipt Date: 20150629
  Transmission Date: 20150821
  Serious: Yes (Other)
  Sender: FDA-Public Use
  Company Number: FR-ABBVIE-15P-056-1417663-00

PATIENT
  Age: 66 Year
  Sex: Male

DRUGS (1)
  1. DEPAKINE [Suspect]
     Active Substance: VALPROATE SODIUM
     Indication: EPILEPSY
     Dosage: UNKNOWN FREQUENCY
     Route: 048

REACTIONS (3)
  - Treatment noncompliance [Unknown]
  - Gastrooesophageal reflux disease [Unknown]
  - Epilepsy [Recovered/Resolved]
